FAERS Safety Report 7557298-0 (Version None)
Quarter: 2011Q2

REPORT INFORMATION
  Report Type: 
  Country: None (occurrence: None)
  Receive Date: 20110620
  Receipt Date: 20081016
  Transmission Date: 20111010
  Serious: Yes (Other)
  Sender: FDA-Public Use
  Company Number: PHHY2008CA06809

PATIENT
  Sex: Female

DRUGS (2)
  1. ALVESCO [Concomitant]
  2. SANDOSTATIN LAR [Suspect]
     Indication: ACROMEGALY
     Dosage: 40 MG EVERY FOUR WEEKS
     Route: 030
     Dates: start: 20050910

REACTIONS (8)
  - WEIGHT DECREASED [None]
  - DYSPNOEA [None]
  - OESOPHAGEAL PERFORATION [None]
  - HEADACHE [None]
  - ENDOSCOPY UPPER GASTROINTESTINAL TRACT ABNORMAL [None]
  - NOCTURIA [None]
  - PAIN [None]
  - ASTHMA [None]
